FAERS Safety Report 10641302 (Version 4)
Quarter: 2015Q3

REPORT INFORMATION
  Report Type: Spontaneous
  Country: US (occurrence: US)
  Receive Date: 20141209
  Receipt Date: 20150824
  Transmission Date: 20151125
  Serious: Yes (Hospitalization, Other)
  Sender: FDA-Public Use
  Company Number: US-BAYER-2014-181088

PATIENT
  Age: 21 Year
  Sex: Female

DRUGS (3)
  1. MIRENA [Suspect]
     Active Substance: LEVONORGESTREL
     Indication: CONTRACEPTION
     Dosage: 20 MG/24HR, CONT
     Route: 015
     Dates: start: 20070510, end: 20081117
  2. MIRENA [Suspect]
     Active Substance: LEVONORGESTREL
     Indication: CONTRACEPTION
     Dosage: 20 MG/24HR, CONT
     Route: 015
     Dates: start: 20081117, end: 20091230
  3. XANAX [Concomitant]
     Active Substance: ALPRAZOLAM
     Indication: ANXIETY
     Dosage: 0.25 MG, UNK
     Dates: start: 20081117

REACTIONS (16)
  - Internal injury [None]
  - Emotional distress [None]
  - Depression [None]
  - Embedded device [None]
  - Gastrointestinal injury [None]
  - Genital haemorrhage [None]
  - Injury [None]
  - Infertility female [None]
  - Uterine perforation [None]
  - Medical device discomfort [None]
  - Abdominal pain [None]
  - Pelvic pain [None]
  - Anxiety [None]
  - Depressed mood [None]
  - Fear [None]
  - Device issue [None]

NARRATIVE: CASE EVENT DATE: 2007
